FAERS Safety Report 8948206 (Version 1)
Quarter: 2012Q4

REPORT INFORMATION
  Report Type: Spontaneous
  Country: US (occurrence: None)
  Receive Date: 20121203
  Receipt Date: 20121203
  Transmission Date: 20130627
  Serious: Yes (Other)
  Sender: FDA-Public Use
  Company Number: None

PATIENT
  Sex: Female

DRUGS (1)
  1. MOTELUKAST [Suspect]
     Indication: ALLERGIC RHINITIS
     Dates: start: 20120814, end: 20120914

REACTIONS (1)
  - Sputum increased [None]
